FAERS Safety Report 8914491 (Version 1)
Quarter: 2012Q4

REPORT INFORMATION
  Report Type: 
  Country: CA (occurrence: CA)
  Receive Date: 20121119
  Receipt Date: 20121119
  Transmission Date: 20130627
  Serious: Yes (Hospitalization)
  Sender: FDA-Public Use
  Company Number: PHBS2000CA11403

PATIENT
  Age: 75 Year
  Sex: Female

DRUGS (7)
  1. EXELON [Suspect]
     Indication: DEMENTIA ALZHEIMER^S TYPE
     Dosage: 1.5 mg, BID
     Dates: start: 20000917
  2. EXELON [Suspect]
     Dosage: 3 mg, BID
     Route: 048
  3. EXELON [Suspect]
     Dosage: 4.5 mg, BID
     Route: 048
  4. HYDROCHLOROTHIAZIDE [Concomitant]
     Dosage: 25 mg, UNK
  5. FOSAMAX [Concomitant]
     Dosage: 10 mg, QD
  6. ENTROPHEN [Concomitant]
     Dosage: 325 mg, QD
  7. VASOTEC [Concomitant]
     Dosage: 10 mg

REACTIONS (4)
  - Syncope [Recovered/Resolved]
  - Muscle spasms [Not Recovered/Not Resolved]
  - Dizziness [Not Recovered/Not Resolved]
  - Abdominal pain [Recovered/Resolved]
